FAERS Safety Report 15651690 (Version 2)
Quarter: 2018Q4

REPORT INFORMATION
  Report Type: Spontaneous
  Country: NL (occurrence: NL)
  Receive Date: 20181123
  Receipt Date: 20181231
  Transmission Date: 20190205
  Serious: Yes (Death, Hospitalization, Other)
  Sender: FDA-Public Use
  Company Number: NL-ALEXION PHARMACEUTICALS INC.-A201815381

PATIENT
  Age: 16 Month
  Sex: Male

DRUGS (2)
  1. SOLIRIS [Suspect]
     Active Substance: ECULIZUMAB
     Indication: HAEMOLYTIC URAEMIC SYNDROME
     Dosage: 600 MG, UNK
     Route: 065
  2. SOLIRIS [Suspect]
     Active Substance: ECULIZUMAB
     Indication: OFF LABEL USE

REACTIONS (20)
  - Hepatic failure [Fatal]
  - Bradycardia [Unknown]
  - Blood bilirubin increased [Unknown]
  - Amylase increased [Unknown]
  - Blood triglycerides increased [Unknown]
  - Off label use [Unknown]
  - Procedural hypotension [Unknown]
  - Cholestasis [Unknown]
  - Nervous system disorder [Fatal]
  - Blood creatine phosphokinase increased [Unknown]
  - Transaminases increased [Unknown]
  - Dystonia [Unknown]
  - Jaundice [Unknown]
  - Dialysis related complication [Fatal]
  - Troponin T increased [Unknown]
  - Left ventricular dilatation [Unknown]
  - Thrombotic microangiopathy [Unknown]
  - Left ventricular dysfunction [Unknown]
  - Blood glucose increased [Unknown]
  - Blood albumin decreased [Unknown]
